FAERS Safety Report 22095582 (Version 1)
Quarter: 2023Q1

REPORT INFORMATION
  Report Type: Spontaneous
  Country: DE (occurrence: DE)
  Receive Date: 20230314
  Receipt Date: 20230314
  Transmission Date: 20230418
  Serious: Yes (Disabling, Other)
  Sender: FDA-Public Use
  Company Number: DE-RECORDATI RARE DISEASE INC.-2023001104

PATIENT
  Sex: Male
  Weight: 70 kg

DRUGS (38)
  1. ADRIAMYCIN [Suspect]
     Active Substance: DOXORUBICIN HYDROCHLORIDE
     Indication: Ewing^s sarcoma
     Dosage: 60 MG, 2X/DAY (CHEMO 1)
     Dates: start: 19890606, end: 19890612
  2. ADRIAMYCIN [Suspect]
     Active Substance: DOXORUBICIN HYDROCHLORIDE
     Dosage: 60 MG, 2X/DAY  (CHEMO 2)
     Dates: start: 19890628, end: 19890703
  3. ADRIAMYCIN [Suspect]
     Active Substance: DOXORUBICIN HYDROCHLORIDE
     Dosage: CHEMO 3
     Dates: start: 19890720, end: 19890725
  4. ADRIAMYCIN [Suspect]
     Active Substance: DOXORUBICIN HYDROCHLORIDE
     Dosage: 60 MG, 2X/DAY (CHEMO 4)
     Dates: start: 19890826, end: 19890830
  5. ADRIAMYCIN [Suspect]
     Active Substance: DOXORUBICIN HYDROCHLORIDE
     Dosage: 60 MG, 2X/DAY (CHEMO 5)
     Dates: start: 19890915, end: 19890919
  6. VINCRISTINE SULFATE [Suspect]
     Active Substance: VINCRISTINE SULFATE
     Indication: Ewing^s sarcoma
     Dosage: 2 MG, 1X/DAY (CHEMO 1)
     Dates: start: 19890606, end: 19890612
  7. VINCRISTINE SULFATE [Suspect]
     Active Substance: VINCRISTINE SULFATE
     Dosage: 2 MG, 1X/DAY (CHEMO 2)
     Dates: start: 19890628, end: 19890703
  8. VINCRISTINE SULFATE [Suspect]
     Active Substance: VINCRISTINE SULFATE
     Dosage: CHEMO 3
     Dates: start: 19890720, end: 19890725
  9. VINCRISTINE SULFATE [Suspect]
     Active Substance: VINCRISTINE SULFATE
     Dosage: 2 MG, 1X/DAY (CHEMO 4)
     Dates: start: 19890826, end: 19890830
  10. VINCRISTINE SULFATE [Suspect]
     Active Substance: VINCRISTINE SULFATE
     Dosage: 1.5 MG, 1X/DAY (CHEMO 5)
     Dates: start: 19890915, end: 19890919
  11. VINCRISTINE SULFATE [Suspect]
     Active Substance: VINCRISTINE SULFATE
     Dosage: 1.5 MG, 1X/DAY (CHEMO 7)
     Dates: start: 19891103, end: 19891107
  12. VINCRISTINE SULFATE [Suspect]
     Active Substance: VINCRISTINE SULFATE
     Dosage: 2 MG, 1X/DAY (CHEMO 8)
     Dates: start: 19891129, end: 19891203
  13. VINCRISTINE SULFATE [Suspect]
     Active Substance: VINCRISTINE SULFATE
     Dosage: CHEMO 9
     Dates: start: 19891226, end: 19891230
  14. VINCRISTINE SULFATE [Suspect]
     Active Substance: VINCRISTINE SULFATE
     Dosage: 2 MG, 1X/DAY (CHEMO 10)
     Dates: start: 19900119, end: 19900122
  15. VINCRISTINE SULFATE [Suspect]
     Active Substance: VINCRISTINE SULFATE
     Dosage: 1 MG, 1X/DAY (CHEMO 11)
     Dates: start: 19900214, end: 19900217
  16. ETOPOSIDE [Suspect]
     Active Substance: ETOPOSIDE
     Indication: Ewing^s sarcoma
     Dosage: 400 MG, 3X/DAY (CHEMO 4)
     Dates: start: 19890826, end: 19890830
  17. ETOPOSIDE [Suspect]
     Active Substance: ETOPOSIDE
     Dosage: 400 MG, 3X/DAY (CHEMO 6)
     Dates: start: 19891009, end: 19891013
  18. ETOPOSIDE [Suspect]
     Active Substance: ETOPOSIDE
     Dosage: 400 MG, 3X/DAY (CHEMO 8)
     Dates: start: 19891129, end: 19891203
  19. ETOPOSIDE [Suspect]
     Active Substance: ETOPOSIDE
     Dosage: 400 MG, 3X/DAY CHEMO 10)
     Dates: start: 19900119, end: 19900122
  20. ETOPOSIDE [Suspect]
     Active Substance: ETOPOSIDE
     Dosage: 1X150MG + 2X400MG (CHEMO 12)
     Dates: start: 19900309, end: 19900313
  21. CYCLOPHOSPHAMIDE [Suspect]
     Active Substance: CYCLOPHOSPHAMIDE
     Indication: Ewing^s sarcoma
     Dosage: 800 MG, 3X/DAY (CHEMO 10)
     Dates: start: 19900119, end: 19900122
  22. CYCLOPHOSPHAMIDE [Suspect]
     Active Substance: CYCLOPHOSPHAMIDE
     Dosage: 800 MG, 3X/DAY (CHEMO 11)
     Dates: start: 19900214, end: 19900217
  23. COSMEGEN [Suspect]
     Active Substance: DACTINOMYCIN
     Indication: Ewing^s sarcoma
     Dosage: 1 MG, 2X/DAY (CHEMO1)
     Dates: start: 19890606, end: 19890612
  24. COSMEGEN [Suspect]
     Active Substance: DACTINOMYCIN
     Dosage: 1 MG, 3X/DAY (CHEMO 2)
     Dates: start: 19890628, end: 19890703
  25. COSMEGEN [Suspect]
     Active Substance: DACTINOMYCIN
     Dosage: CHEMO 3
     Dates: start: 19890720, end: 19890725
  26. COSMEGEN [Suspect]
     Active Substance: DACTINOMYCIN
     Dosage: 1 MG, 3X/DAY (CHEMO 5)
     Dates: start: 19890915, end: 19890919
  27. COSMEGEN [Suspect]
     Active Substance: DACTINOMYCIN
     Dosage: 1 MILLIGRAM, TID (CHEMO 6)
     Dates: start: 19891009, end: 19891013
  28. COSMEGEN [Suspect]
     Active Substance: DACTINOMYCIN
     Dosage: 1 MG, 3X/DAY (CHEMO 11)
     Dates: start: 19900214, end: 19900217
  29. IFOSFAMIDE [Suspect]
     Active Substance: IFOSFAMIDE
     Indication: Ewing^s sarcoma
     Dosage: 3000 MG, 4X/DAY (CHEMO 1)
     Dates: start: 19890606, end: 19890612
  30. IFOSFAMIDE [Suspect]
     Active Substance: IFOSFAMIDE
     Dosage: 3000 MG, 3X/DAY ( CHEMO 2)
     Dates: start: 19890628, end: 19890703
  31. IFOSFAMIDE [Suspect]
     Active Substance: IFOSFAMIDE
     Dosage: CHEMO 3
     Dates: start: 19890720, end: 19890725
  32. IFOSFAMIDE [Suspect]
     Active Substance: IFOSFAMIDE
     Dosage: 3000 MG, 3X/DAY (CHEMO 4)
     Dates: start: 19890826, end: 19890830
  33. IFOSFAMIDE [Suspect]
     Active Substance: IFOSFAMIDE
     Dosage: 3000 MG, 3X/DAY (CHEMO 5)
     Dates: start: 19890915, end: 19890919
  34. IFOSFAMIDE [Suspect]
     Active Substance: IFOSFAMIDE
     Dosage: 3000 MG, 3X/DAY (CHEMO 6)
     Dates: start: 19891009, end: 19891013
  35. IFOSFAMIDE [Suspect]
     Active Substance: IFOSFAMIDE
     Dosage: 3000 MG, 3X/DAY  (CHEMO 7)
     Dates: start: 19891103, end: 19891107
  36. IFOSFAMIDE [Suspect]
     Active Substance: IFOSFAMIDE
     Dosage: 2000 MG, 2X/DAY (CHEMO 8)
     Dates: start: 19891129, end: 19891203
  37. IFOSFAMIDE [Suspect]
     Active Substance: IFOSFAMIDE
     Dosage: CHEMO 9
     Dates: start: 19891226, end: 19891230
  38. IFOSFAMIDE [Suspect]
     Active Substance: IFOSFAMIDE
     Dosage: 3000 MG, 4X/DAY (CHEMO 12)
     Dates: start: 19900309, end: 19900313

REACTIONS (11)
  - Altered state of consciousness [Unknown]
  - Hallucination [Unknown]
  - Seizure [Unknown]
  - Nausea [Recovered/Resolved with Sequelae]
  - Disorientation [Recovered/Resolved with Sequelae]
  - Headache [Not Recovered/Not Resolved]
  - Vomiting [Unknown]
  - Fatigue [Not Recovered/Not Resolved]
  - Confusional state [Unknown]
  - Muscle spasms [Unknown]
  - Asthenia [Not Recovered/Not Resolved]
